FAERS Safety Report 19479058 (Version 9)
Quarter: 2024Q1

REPORT INFORMATION
  Report Type: Report from Study
  Country: US (occurrence: US)
  Receive Date: 20210701
  Receipt Date: 20240116
  Transmission Date: 20240410
  Serious: No
  Sender: FDA-Public Use
  Company Number: US-ACADIA PHARMACEUTICALS INC.-ACA-2021-PIM-002120

PATIENT
  Age: 74 Year
  Sex: Male

DRUGS (28)
  1. NUPLAZID [Suspect]
     Active Substance: PIMAVANSERIN TARTRATE
     Indication: Parkinson^s disease
     Dosage: 34 MILLIGRAM, QD
     Route: 048
     Dates: start: 202102
  2. NUPLAZID [Suspect]
     Active Substance: PIMAVANSERIN TARTRATE
     Indication: Hallucination
     Dosage: 44 MILLIGRAM, QD
     Route: 048
  3. NUPLAZID [Suspect]
     Active Substance: PIMAVANSERIN TARTRATE
     Dosage: 34 MILLIGRAM, QD (EVERY MORNING)
     Route: 048
  4. NUPLAZID [Suspect]
     Active Substance: PIMAVANSERIN TARTRATE
     Dosage: 44 MILLIGRAM, QD
     Route: 048
  5. NUPLAZID [Suspect]
     Active Substance: PIMAVANSERIN TARTRATE
     Dosage: 34 MILLIGRAM, QD
     Route: 048
  6. NUPLAZID [Suspect]
     Active Substance: PIMAVANSERIN TARTRATE
     Indication: Parkinson^s disease
     Dosage: 44 MILLIGRAM, QD
     Route: 048
  7. NUPLAZID [Suspect]
     Active Substance: PIMAVANSERIN TARTRATE
     Indication: Hallucination
     Dosage: 10 MILLIGRAM, QD, IN THE EVENING
     Route: 048
  8. NUPLAZID [Suspect]
     Active Substance: PIMAVANSERIN TARTRATE
     Dosage: 44 MILLIGRAM, QD
     Route: 048
  9. NUPLAZID [Suspect]
     Active Substance: PIMAVANSERIN TARTRATE
     Dosage: 10 MILLIGRAM, QD
     Route: 048
  10. OLANZAPINE [Suspect]
     Active Substance: OLANZAPINE
  11. RYTARY [Suspect]
     Active Substance: CARBIDOPA\LEVODOPA
     Dosage: 195 AND 245
     Dates: start: 202102
  12. RYTARY [Suspect]
     Active Substance: CARBIDOPA\LEVODOPA
     Dosage: UNK
  13. MIDODRINE [Suspect]
     Active Substance: MIDODRINE
     Dosage: UNK
     Dates: start: 202102
  14. FLUDROCORTISONE ACETATE [Concomitant]
     Active Substance: FLUDROCORTISONE ACETATE
  15. MIDODRINE HYDROCHLORIDE [Concomitant]
     Active Substance: MIDODRINE HYDROCHLORIDE
     Dosage: 10 MILLIGRAM
  16. SEROQUEL [Concomitant]
     Active Substance: QUETIAPINE FUMARATE
     Dosage: UNK
  17. MUCINEX [Concomitant]
     Active Substance: GUAIFENESIN
  18. DROXIDOPA [Concomitant]
     Active Substance: DROXIDOPA
  19. XANAX [Concomitant]
     Active Substance: ALPRAZOLAM
  20. CALCIUM [Concomitant]
     Active Substance: CALCIUM
  21. NORTHERA [Concomitant]
     Active Substance: DROXIDOPA
  22. MAGNESIUM [Concomitant]
     Active Substance: MAGNESIUM
  23. CARBIDOPA\LEVODOPA [Concomitant]
     Active Substance: CARBIDOPA\LEVODOPA
  24. FLECAINIDE [Concomitant]
     Active Substance: FLECAINIDE
  25. VITAMIN B12 [Concomitant]
     Active Substance: CYANOCOBALAMIN
  26. CARBIDOPA [Concomitant]
     Active Substance: CARBIDOPA
  27. ACID CONTROLLER [Concomitant]
     Active Substance: FAMOTIDINE
  28. FISH OIL [Concomitant]
     Active Substance: FISH OIL

REACTIONS (19)
  - Illness [Unknown]
  - Fatigue [Unknown]
  - Sluggishness [Unknown]
  - Abdominal pain upper [Unknown]
  - Viral infection [Unknown]
  - Cough [Unknown]
  - Gait inability [Unknown]
  - Anxiety [Unknown]
  - Paranoia [Unknown]
  - Fatigue [Unknown]
  - Insomnia [Unknown]
  - Memory impairment [Unknown]
  - Blood pressure decreased [Unknown]
  - Hypophagia [Unknown]
  - Prescribed overdose [Unknown]
  - Hallucination [Unknown]
  - Hallucination [Unknown]
  - Hallucination [Unknown]
  - Drug ineffective [Unknown]

NARRATIVE: CASE EVENT DATE: 20221201
